FAERS Safety Report 17951434 (Version 1)
Quarter: 2020Q2

REPORT INFORMATION
  Report Type: Spontaneous
  Country: PL (occurrence: PL)
  Receive Date: 20200626
  Receipt Date: 20200626
  Transmission Date: 20200714
  Serious: Yes (Hospitalization)
  Sender: FDA-Public Use
  Company Number: PL-SCIEGEN-2020SCILIT00125

PATIENT
  Age: 51 Year
  Sex: Female

DRUGS (9)
  1. LAMOTRIGINE TABLETS [Suspect]
     Active Substance: LAMOTRIGINE
     Route: 065
  2. AMANTADINE. [Interacting]
     Active Substance: AMANTADINE HYDROCHLORIDE
     Indication: NEUROLEPTIC MALIGNANT SYNDROME
     Dosage: UPTO 200 MG/D
     Route: 065
  3. LAMOTRIGINE TABLETS [Suspect]
     Active Substance: LAMOTRIGINE
     Indication: AFFECTIVE DISORDER
     Dosage: AFTER 2 WEEKS DOSE WAS INCREASED TO 50MG/DAY EVERYWEEK UPTO 200 M/DAYMG/D
     Route: 065
  4. ARIPIPRAZOLE. [Suspect]
     Active Substance: ARIPIPRAZOLE
     Route: 065
  5. QUETIAPINE. [Suspect]
     Active Substance: QUETIAPINE
     Indication: PRODUCT USED FOR UNKNOWN INDICATION
     Dosage: UPTITRATE THE QUETIAPINE DOSE TO 400 MG/D, WHICH TOOK 9 DAYS
     Route: 065
  6. QUETIAPINE. [Suspect]
     Active Substance: QUETIAPINE
     Route: 065
  7. BROMOCRIPTINE [Interacting]
     Active Substance: BROMOCRIPTINE
     Indication: NEUROLEPTIC MALIGNANT SYNDROME
     Route: 065
  8. ARIPIPRAZOLE. [Suspect]
     Active Substance: ARIPIPRAZOLE
     Indication: DELUSION
     Dosage: UPTITRATED TO THE FINAL DOSE OF 30MG/D OVER 2 WEEKS
     Route: 065
  9. LORAZEPAM. [Interacting]
     Active Substance: LORAZEPAM
     Indication: NEUROLEPTIC MALIGNANT SYNDROME
     Route: 065

REACTIONS (5)
  - Sleep disorder [Unknown]
  - Therapeutic product effect decreased [Unknown]
  - Persecutory delusion [Recovering/Resolving]
  - Neuroleptic malignant syndrome [Recovering/Resolving]
  - Ideas of reference [Recovering/Resolving]
